FAERS Safety Report 16298001 (Version 1)
Quarter: 2019Q2

REPORT INFORMATION
  Report Type: Spontaneous
  Country: AU (occurrence: AU)
  Receive Date: 20190510
  Receipt Date: 20190510
  Transmission Date: 20190711
  Serious: Yes (Life-Threatening, Other)
  Sender: FDA-Public Use
  Company Number: AU-LUPIN PHARMACEUTICALS INC.-2019-02854

PATIENT
  Age: 82 Year
  Sex: Male

DRUGS (3)
  1. ATENOLOL. [Concomitant]
     Active Substance: ATENOLOL
     Indication: PRODUCT USED FOR UNKNOWN INDICATION
     Dosage: 50 MILLIGRAM, QD (IN THE MORNING)
     Route: 065
     Dates: start: 2012
  2. ASPIRINE [Concomitant]
     Active Substance: ASPIRIN
     Indication: PRODUCT USED FOR UNKNOWN INDICATION
     Dosage: 100 MILLIGRAM, QD (IN THE MORNING)
     Route: 065
     Dates: start: 2012
  3. ATORVASTATIN CALCIUM. [Suspect]
     Active Substance: ATORVASTATIN CALCIUM
     Indication: PRODUCT USED FOR UNKNOWN INDICATION
     Dosage: 80 MILLIGRAM, QD (AT NIGHT)
     Route: 065
     Dates: start: 2012, end: 201805

REACTIONS (3)
  - Myositis [Recovering/Resolving]
  - Drug interaction [Recovering/Resolving]
  - Hepatotoxicity [Recovered/Resolved]

NARRATIVE: CASE EVENT DATE: 2017
